FAERS Safety Report 23472455 (Version 2)
Quarter: 2024Q1

REPORT INFORMATION
  Report Type: Report from Study
  Country: CA (occurrence: CA)
  Receive Date: 20240202
  Receipt Date: 20240223
  Transmission Date: 20240410
  Serious: Yes (Hospitalization)
  Sender: FDA-Public Use
  Company Number: CA-BEH-2024168087

PATIENT
  Age: 47 Year
  Sex: Female
  Weight: 78.2 kg

DRUGS (1)
  1. HIZENTRA [Suspect]
     Active Substance: HUMAN IMMUNOGLOBULIN G
     Indication: Primary immunodeficiency syndrome
     Dosage: 7 GRAM, QW
     Route: 065
     Dates: start: 20160101

REACTIONS (5)
  - Unevaluable event [Unknown]
  - Injection site swelling [Unknown]
  - Injection site erythema [Unknown]
  - Injection site swelling [Unknown]
  - Injection site erythema [Unknown]
